FAERS Safety Report 5821492-7 (Version None)
Quarter: 2008Q3

REPORT INFORMATION
  Report Type: 
  Country: None (occurrence: None)
  Receive Date: 20080724
  Receipt Date: 20080714
  Transmission Date: 20090109
  Serious: Yes (Hospitalization)
  Sender: FDA-Public Use
  Company Number: ID-JNJFOC-20080703470

PATIENT
  Age: 70 Year
  Sex: Male

DRUGS (17)
  1. REMICADE [Suspect]
     Route: 042
  2. REMICADE [Suspect]
     Route: 042
  3. REMICADE [Suspect]
     Route: 042
  4. REMICADE [Suspect]
     Indication: RHEUMATOID ARTHRITIS
     Route: 042
  5. RHEUMATREX [Concomitant]
     Indication: RHEUMATOID ARTHRITIS
     Route: 048
  6. FOLIC ACID [Concomitant]
     Indication: PROPHYLAXIS
     Route: 048
  7. AUGMENTIN '125' [Concomitant]
     Indication: SINUSITIS
     Route: 048
  8. INH CIBA [Concomitant]
     Indication: ANTIBIOTIC PROPHYLAXIS
     Route: 048
  9. MEDIXON [Concomitant]
     Indication: STEROID THERAPY
     Route: 048
  10. DIPHENHYDRAMINE HCL [Concomitant]
  11. DIPHENHYDRAMINE HCL [Concomitant]
  12. DIPHENHYDRAMINE HCL [Concomitant]
  13. DIPHENHYDRAMINE HCL [Concomitant]
     Indication: PREMEDICATION
  14. DEXAMETHASONE [Concomitant]
     Route: 042
  15. DEXAMETHASONE [Concomitant]
     Route: 042
  16. DEXAMETHASONE [Concomitant]
     Route: 042
  17. DEXAMETHASONE [Concomitant]
     Indication: PREMEDICATION
     Route: 042

REACTIONS (7)
  - ABDOMINAL DISTENSION [None]
  - ABDOMINAL PAIN UPPER [None]
  - CONSTIPATION [None]
  - DYSPEPSIA [None]
  - GASTRIC CANCER [None]
  - SINUSITIS [None]
  - WEIGHT DECREASED [None]
